FAERS Safety Report 8897492 (Version 1)
Quarter: 2012Q4

REPORT INFORMATION
  Report Type: 
  Country: US (occurrence: US)
  Receive Date: 20121108
  Receipt Date: 20121108
  Transmission Date: 20130627
  Serious: No
  Sender: FDA-Public Use
  Company Number: US-AMGEN-USASP2012025817

PATIENT
  Age: 51 Year
  Sex: Female
  Weight: 66.21 kg

DRUGS (7)
  1. ENBREL [Suspect]
     Indication: PSORIATIC ARTHROPATHY
     Dosage: 50 mg, qwk
     Route: 058
  2. AMLODIPINE [Concomitant]
     Dosage: 10 mg, UNK
     Route: 048
  3. FLUCONAZOLE [Concomitant]
     Dosage: 100 mg, UNK
     Route: 048
  4. HUMIRA [Concomitant]
     Dosage: 40 mg, UNK
     Route: 058
     Dates: start: 20120423
  5. DICLOFENAC [Concomitant]
     Dosage: 100 mg, UNK
     Route: 048
  6. NYSTATIN [Concomitant]
     Route: 048
  7. METHYLPRED [Concomitant]
     Dosage: 16 mg, UNK
     Route: 048

REACTIONS (1)
  - Drug ineffective [Unknown]
